FAERS Safety Report 25544167 (Version 2)
Quarter: 2025Q4

REPORT INFORMATION
  Report Type: Spontaneous
  Country: EU (occurrence: EU)
  Receive Date: 20250711
  Receipt Date: 20251104
  Transmission Date: 20260117
  Serious: Yes (Life-Threatening, Hospitalization, Other)
  Sender: MSN LABORATORIES PRIVATE LIMITED
  Company Number: EU-MSNLABS-2025MSNLIT01500

PATIENT

DRUGS (1)
  1. ATORVASTATIN [Suspect]
     Active Substance: ATORVASTATIN
     Indication: Dyslipidaemia
     Dosage: FOR 3 YEARS
     Route: 065

REACTIONS (8)
  - Normochromic normocytic anaemia [Recovering/Resolving]
  - Immune-mediated myositis [Recovering/Resolving]
  - Blood creatine phosphokinase increased [Unknown]
  - Walking disability [Unknown]
  - Myoglobin blood increased [Unknown]
  - Muscular weakness [Unknown]
  - Myalgia [Unknown]
  - Myopathy [Unknown]
